FAERS Safety Report 10618795 (Version 2)
Quarter: 2014Q4

REPORT INFORMATION
  Report Type: Spontaneous
  Country: IT (occurrence: IT)
  Receive Date: 20141202
  Receipt Date: 20141226
  Transmission Date: 20150529
  Serious: Yes (Other)
  Sender: FDA-Public Use
  Company Number: IT-UCBSA-2014019574

PATIENT
  Age: 56 Year
  Sex: Female
  Weight: 56 kg

DRUGS (3)
  1. METHOTREXATE [Concomitant]
     Active Substance: METHOTREXATE
     Indication: RHEUMATOID ARTHRITIS
     Dosage: 10 MG, UNK (10 MG/1.33 ML)
     Route: 030
     Dates: start: 20040101
  2. CIMZIA [Suspect]
     Active Substance: CERTOLIZUMAB PEGOL
     Indication: RHEUMATOID ARTHRITIS
     Dosage: 200 MG, EV 15 DAYS
     Route: 058
     Dates: start: 20110801, end: 20141102
  3. DELTACORTENE [Concomitant]
     Active Substance: PREDNISONE
     Indication: ADJUVANT THERAPY
     Dosage: 5 MG, UNK
     Route: 048
     Dates: start: 20040101

REACTIONS (2)
  - Malignant melanoma in situ [Recovering/Resolving]
  - Hypersensitivity vasculitis [Unknown]

NARRATIVE: CASE EVENT DATE: 2013
